FAERS Safety Report 6738331-2 (Version None)
Quarter: 2010Q2

REPORT INFORMATION
  Report Type: 
  Country: None (occurrence: None)
  Receive Date: 20100524
  Receipt Date: 20100510
  Transmission Date: 20101027
  Serious: Yes (Hospitalization, Other)
  Sender: FDA-Public Use
  Company Number: US-ELI_LILLY_AND_COMPANY-US200912005946

PATIENT
  Sex: Female

DRUGS (4)
  1. FORTEO [Suspect]
     Indication: OSTEOPOROSIS POSTMENOPAUSAL
     Dosage: 20 UG, DAILY (1/D)
     Dates: start: 20090401
  2. FORTEO [Suspect]
     Dosage: 20 UG, DAILY (1/D)
  3. ANTIEPILEPTICS [Concomitant]
     Indication: CONVULSION
     Dosage: UNK, UNKNOWN
  4. CARDIOVASCULAR SYSTEM DRUGS [Concomitant]
     Indication: BLOOD PRESSURE ABNORMAL
     Dosage: UNK, UNKNOWN

REACTIONS (4)
  - FALL [None]
  - HYPERTENSION [None]
  - TRAUMATIC BRAIN INJURY [None]
  - WRIST FRACTURE [None]
